FAERS Safety Report 7345321-8 (Version None)
Quarter: 2011Q1

REPORT INFORMATION
  Report Type: 
  Country: None (occurrence: None)
  Receive Date: 20110310
  Receipt Date: 20110301
  Transmission Date: 20110831
  Serious: Yes (Other)
  Sender: FDA-Public Use
  Company Number: US-ASTRAZENECA-2011SE11541

PATIENT
  Age: 23 Month
  Sex: Male

DRUGS (2)
  1. NEXIUM [Suspect]
     Indication: GASTROOESOPHAGEAL REFLUX DISEASE
     Dosage: TWICE DAILY
     Route: 048
  2. NEXIUM [Suspect]
     Dosage: THREE TIMES A DAY
     Route: 048

REACTIONS (4)
  - VOMITING [None]
  - INAPPROPRIATE SCHEDULE OF DRUG ADMINISTRATION [None]
  - DEVICE RELATED INFECTION [None]
  - GASTROOESOPHAGEAL REFLUX DISEASE [None]
